FAERS Safety Report 11109729 (Version 1)
Quarter: 2015Q2

REPORT INFORMATION
  Report Type: Spontaneous
  Country: US (occurrence: None)
  Receive Date: 20150512
  Receipt Date: 20150512
  Transmission Date: 20150821
  Serious: No
  Sender: FDA-Public Use
  Company Number: None

PATIENT
  Age: 51 Year
  Sex: Male

DRUGS (1)
  1. HARVONI [Suspect]
     Active Substance: LEDIPASVIR\SOFOSBUVIR
     Indication: CHRONIC HEPATITIS C
     Dosage: VARVONI 90/400MG, DAILY, PO
     Route: 048
     Dates: start: 20150219

REACTIONS (3)
  - Peripheral swelling [None]
  - Joint swelling [None]
  - Arthralgia [None]
